FAERS Safety Report 23093602 (Version 1)
Quarter: 2023Q4

REPORT INFORMATION
  Report Type: Report from Study
  Country: FR (occurrence: FR)
  Receive Date: 20231023
  Receipt Date: 20231023
  Transmission Date: 20240110
  Serious: Yes (Other)
  Sender: FDA-Public Use
  Company Number: FR-UCBSA-2023050079

PATIENT
  Age: 16 Year
  Sex: Male
  Weight: 34.4 kg

DRUGS (10)
  1. FINTEPLA [Suspect]
     Active Substance: FENFLURAMINE
     Indication: Severe myoclonic epilepsy of infancy
     Dosage: 20MG/DAY
     Dates: start: 20211103
  2. FINTEPLA [Suspect]
     Active Substance: FENFLURAMINE
     Dosage: UNK
     Dates: start: 20220209
  3. FINTEPLA [Suspect]
     Active Substance: FENFLURAMINE
     Dosage: UNK
     Dates: start: 20220412
  4. TOPIRAMATE [Concomitant]
     Active Substance: TOPIRAMATE
     Indication: Product used for unknown indication
     Dosage: 1.5MG/KG/DAY
     Dates: start: 2007
  5. CLOBAZAM [Concomitant]
     Active Substance: CLOBAZAM
     Indication: Product used for unknown indication
     Dosage: 1.5 MG/KG/D
     Dates: start: 2007
  6. CLOBAZAM [Concomitant]
     Active Substance: CLOBAZAM
     Dosage: 0.25MG/KG/D
     Dates: start: 202206
  7. STIRIPENTOL [Concomitant]
     Active Substance: STIRIPENTOL
     Indication: Product used for unknown indication
     Dosage: 25 MG/KG/DAY
     Dates: start: 2007, end: 20220210
  8. VALPROATE [Concomitant]
     Active Substance: VALPROIC ACID
     Indication: Product used for unknown indication
     Dosage: 10 MG/KG/DAY
     Dates: start: 2006
  9. VALPROATE [Concomitant]
     Active Substance: VALPROIC ACID
     Dosage: 25 MG/KG/D
     Dates: start: 202206
  10. CANNABIDIOL [Concomitant]
     Active Substance: CANNABIDIOL
     Indication: Product used for unknown indication
     Dosage: 7 MG/KG/D
     Dates: start: 202206

REACTIONS (2)
  - Seizure [Unknown]
  - Weight decreased [Unknown]

NARRATIVE: CASE EVENT DATE: 20220101
